FAERS Safety Report 16578260 (Version 1)
Quarter: 2019Q3

REPORT INFORMATION
  Report Type: Spontaneous
  Country: US (occurrence: US)
  Receive Date: 20190603
  Receipt Date: 20190603
  Transmission Date: 20191004
  Serious: No
  Sender: FDA-Public Use
  Company Number: None

PATIENT
  Age: 55 Year
  Sex: Female

DRUGS (1)
  1. SOFOSBUVIR/VELPATASVIR 400-100MG [Suspect]
     Active Substance: SOFOSBUVIR\VELPATASVIR
     Dates: start: 20190505

REACTIONS (6)
  - Memory impairment [None]
  - Headache [None]
  - Fatigue [None]
  - Nausea [None]
  - Hunger [None]
  - Product dose omission [None]

NARRATIVE: CASE EVENT DATE: 20190525
